FAERS Safety Report 19978798 (Version 1)
Quarter: 2021Q4

REPORT INFORMATION
  Report Type: Spontaneous
  Country: KR (occurrence: KR)
  Receive Date: 20211020
  Receipt Date: 20211020
  Transmission Date: 20220303
  Serious: Yes (Other)
  Sender: FDA-Public Use
  Company Number: KR-NOVEN PHARMACEUTICALS, INC.-2021-NOV-KR003833

PATIENT
  Age: 47 Year
  Sex: Female

DRUGS (3)
  1. LIDOCAINE [Suspect]
     Active Substance: LIDOCAINE
     Indication: Arthralgia
     Dosage: 3ML OF 2% LIDOCAINE (TOTAL OF 6ML), UNK
     Route: 065
  2. LIDOCAINE [Suspect]
     Active Substance: LIDOCAINE
     Indication: Periarthritis
  3. LIDOCAINE [Suspect]
     Active Substance: LIDOCAINE
     Indication: Anaesthesia

REACTIONS (1)
  - Nerve root injury [Recovered/Resolved with Sequelae]
